FAERS Safety Report 7378073-6 (Version None)
Quarter: 2011Q1

REPORT INFORMATION
  Report Type: 
  Country: None (occurrence: None)
  Receive Date: 20110317
  Receipt Date: 20110307
  Transmission Date: 20110831
  Serious: Yes (Other)
  Sender: FDA-Public Use
  Company Number: WAES 1103USA00975

PATIENT
  Age: 63 Year
  Sex: Male
  Weight: 92.9874 kg

DRUGS (7)
  1. GEMFIBROZIL [Concomitant]
  2. LIPITOR [Suspect]
     Indication: BLOOD CHOLESTEROL INCREASED
     Dosage: 80 MG/DAILY/PO, PO
     Route: 048
  3. ZETIA [Concomitant]
  4. FINASTERIDE [Concomitant]
  5. ZOCOR [Suspect]
     Dosage: PO
     Route: 048
  6. TOPROL-XL [Concomitant]
  7. COZAAR [Suspect]
     Dosage: PO
     Route: 048

REACTIONS (4)
  - ARTERIAL OCCLUSIVE DISEASE [None]
  - CARDIAC DISORDER [None]
  - DYSPNOEA [None]
  - NO THERAPEUTIC RESPONSE [None]
